FAERS Safety Report 8407767 (Version 6)
Quarter: 2014Q1

REPORT INFORMATION
  Report Type: Report from Study
  Country: LT (occurrence: LT)
  Receive Date: 20120215
  Receipt Date: 20140107
  Transmission Date: 20141002
  Serious: Yes (Hospitalization)
  Sender: FDA-Public Use
  Company Number: PHHO2012LT001933

PATIENT
  Age: 45 Year
  Sex: Female
  Weight: 99 kg

DRUGS (2)
  1. AMN107 [Suspect]
     Indication: CHRONIC MYELOID LEUKAEMIA
     Dosage: 300 MG, BID
     Route: 048
     Dates: start: 20101029, end: 20131203
  2. KALII CHLORIDUM [Concomitant]
     Indication: HYPOKALAEMIA
     Dosage: 750 MG, TID
     Dates: start: 20101129

REACTIONS (1)
  - Metrorrhagia [Recovered/Resolved]
